FAERS Safety Report 11242578 (Version 1)
Quarter: 2015Q3

REPORT INFORMATION
  Report Type: Spontaneous
  Country: DE (occurrence: None)
  Receive Date: 20150702
  Receipt Date: 20150702
  Transmission Date: 20151125
  Serious: Yes (Other)
  Sender: FDA-Public Use
  Company Number: 2015-11652

PATIENT
  Sex: Female

DRUGS (1)
  1. EYLEA [Suspect]
     Active Substance: AFLIBERCEPT
     Indication: PRODUCT USED FOR UNKNOWN INDICATION
     Dosage: 8 INJECTIONS

REACTIONS (4)
  - Headache [None]
  - Chills [None]
  - Circulatory collapse [None]
  - Dizziness [None]

NARRATIVE: CASE EVENT DATE: 201506
